FAERS Safety Report 10502508 (Version 1)
Quarter: 2014Q3

REPORT INFORMATION
  Report Type: Spontaneous
  Country: US (occurrence: None)
  Receive Date: 20140915
  Receipt Date: 20140915
  Transmission Date: 20150326
  Serious: Yes (Other)
  Sender: FDA-Public Use
  Company Number: PHEH2014US011043

PATIENT
  Age: 56 Year
  Sex: Female

DRUGS (14)
  1. DIOVAN [Suspect]
     Active Substance: VALSARTAN
  2. DULOXETINE [Concomitant]
     Active Substance: DULOXETINE
  3. TERAZOSIN [Concomitant]
     Active Substance: TERAZOSIN\TERAZOSIN HYDROCHLORIDE
  4. MULTI-VIT (VITAMINS NOS) [Concomitant]
     Active Substance: VITAMINS
  5. EPINEPHRINE. [Concomitant]
     Active Substance: EPINEPHRINE
  6. ESTROPIPATE. [Concomitant]
     Active Substance: ESTROPIPATE
  7. CALCIUM CARBONATE W/VITAMIN D NOS(CALCIUM CARBONATE, VITAMIN D NOS) [Concomitant]
  8. MORPHINE [Concomitant]
     Active Substance: MORPHINE
  9. HYDROCHLOROTHIAZIDE. [Concomitant]
     Active Substance: HYDROCHLOROTHIAZIDE
  10. ESTRADIOL. [Concomitant]
     Active Substance: ESTRADIOL
  11. PREGABALIN. [Concomitant]
     Active Substance: PREGABALIN
  12. TOVIAZ [Concomitant]
     Active Substance: FESOTERODINE FUMARATE
  13. VERAPAMIL [Concomitant]
     Active Substance: VERAPAMIL HYDROCHLORIDE
  14. B COMPLEX+C ()ASCORBIC ACID, VITAMIN B COMPLEX) [Concomitant]

REACTIONS (2)
  - Drug hypersensitivity [None]
  - Angioedema [None]

NARRATIVE: CASE EVENT DATE: 20131025
